FAERS Safety Report 22611546 (Version 1)
Quarter: 2023Q2

REPORT INFORMATION
  Report Type: Spontaneous
  Country: US (occurrence: US)
  Receive Date: 20230616
  Receipt Date: 20230616
  Transmission Date: 20230721
  Serious: No
  Sender: FDA-Public Use
  Company Number: US-BRISTOL-MYERS SQUIBB COMPANY-2023-084718

PATIENT
  Age: 79 Year
  Sex: Female

DRUGS (1)
  1. POMALYST [Suspect]
     Active Substance: POMALIDOMIDE
     Indication: Osteoporosis
     Dosage: FREQUENCY: TAKE 1 CAPSULE BY MOUTH EVERYDAY FOR 21 DAYS, THEN 7 DAYS OFF
     Route: 048
     Dates: start: 20220502

REACTIONS (2)
  - Intentional dose omission [Unknown]
  - Off label use [Unknown]
